FAERS Safety Report 4698306-4 (Version None)
Quarter: 2005Q2

REPORT INFORMATION
  Report Type: 
  Country: None (occurrence: None)
  Receive Date: 20050621
  Receipt Date: 20050607
  Transmission Date: 20051028
  Serious: Yes (Other)
  Sender: FDA-Public Use
  Company Number: OMPQ-NO-0506S-0860

PATIENT
  Age: 72 Year
  Sex: Female

DRUGS (2)
  1. OMNIPAQUE 140 [Suspect]
     Indication: METASTASES TO LUNG
     Dosage: 100 ML, SINGLE DOSE, I.V.
     Route: 042
     Dates: start: 20050605, end: 20050605
  2. METHYLPREDNISOLONE SODIUM SUCCINATE (SOLU-MEDROL) [Concomitant]

REACTIONS (3)
  - BLOOD PRESSURE SYSTOLIC DECREASED [None]
  - OXYGEN SATURATION DECREASED [None]
  - POST PROCEDURAL DISCOMFORT [None]
